FAERS Safety Report 23796449 (Version 1)
Quarter: 2024Q2

REPORT INFORMATION
  Report Type: Spontaneous
  Country: GB (occurrence: GB)
  Receive Date: 20240430
  Receipt Date: 20240430
  Transmission Date: 20240716
  Serious: Yes (Hospitalization)
  Sender: FDA-Public Use
  Company Number: GB-CELLTRION INC.-2024GB009550

PATIENT

DRUGS (1)
  1. YUFLYMA [Suspect]
     Active Substance: ADALIMUMAB-AATY
     Indication: Psoriatic arthropathy
     Dosage: 40MG, FORTNIGHTLY
     Route: 058
     Dates: start: 20240222

REACTIONS (2)
  - Hospitalisation [Unknown]
  - Tachycardia [Unknown]

NARRATIVE: CASE EVENT DATE: 20240327
